FAERS Safety Report 10279686 (Version 6)
Quarter: 2014Q4

REPORT INFORMATION
  Report Type: Spontaneous
  Country: US (occurrence: US)
  Receive Date: 20140707
  Receipt Date: 20141008
  Transmission Date: 20150528
  Serious: Yes (Hospitalization, Other)
  Sender: FDA-Public Use
  Company Number: US-JNJFOC-20140701184

PATIENT
  Age: 46 Year
  Sex: Male
  Weight: 84.82 kg

DRUGS (14)
  1. PROMETHAZINE [Concomitant]
     Active Substance: PROMETHAZINE\PROMETHAZINE HYDROCHLORIDE
     Indication: NAUSEA
     Dates: start: 200409, end: 200410
  2. TYLENOL REGULAR STRENGTH [Suspect]
     Active Substance: ACETAMINOPHEN
     Indication: PAIN
     Dosage: 2X325 MG THREE TIMES A DAY AS NEEDED
     Route: 048
     Dates: start: 20020420, end: 20050420
  3. CHERATUSSIN AC [Concomitant]
     Active Substance: CODEINE PHOSPHATE\GUAIFENESIN
     Indication: COUGH
     Route: 065
     Dates: start: 200503
  4. BENZONATATE. [Concomitant]
     Active Substance: BENZONATATE
     Indication: COUGH
     Route: 065
     Dates: start: 200503
  5. CIALIS [Concomitant]
     Active Substance: TADALAFIL
     Indication: ERECTILE DYSFUNCTION
     Route: 065
  6. OXYCODONE [Concomitant]
     Active Substance: OXYCODONE
     Indication: BACK PAIN
     Dates: start: 200409
  7. OXYCODONE [Concomitant]
     Active Substance: OXYCODONE
     Indication: BACK PAIN
     Dosage: 5 MG/325 MG
     Dates: start: 2011, end: 2014
  8. ACIPHEX [Concomitant]
     Active Substance: RABEPRAZOLE SODIUM
     Indication: OESOPHAGITIS
     Route: 065
  9. TYLENOL REGULAR STRENGTH [Suspect]
     Active Substance: ACETAMINOPHEN
     Indication: FIBROMYALGIA
     Dosage: 2X325 MG THREE TIMES A DAY AS NEEDED
     Route: 048
     Dates: start: 20020420, end: 20050420
  10. TYLENOL PM [Suspect]
     Active Substance: ACETAMINOPHEN\DIPHENHYDRAMINE
     Indication: SLEEP DISORDER THERAPY
     Dosage: 2X ^325MG? ONCE A DAY (NIGHTLY) AS NEEDED
     Route: 048
     Dates: start: 20020420, end: 20050420
  11. DICYCLOMINE [Concomitant]
     Active Substance: DICYCLOMINE HYDROCHLORIDE
     Indication: IRRITABLE BOWEL SYNDROME
     Dates: start: 200411
  12. CHERATUSSIN AC [Concomitant]
     Active Substance: CODEINE PHOSPHATE\GUAIFENESIN
     Indication: NASOPHARYNGITIS
     Route: 065
     Dates: start: 200503
  13. TYLENOL PM [Suspect]
     Active Substance: ACETAMINOPHEN\DIPHENHYDRAMINE
     Indication: PAIN
     Dosage: 2X ^325MG? ONCE A DAY (NIGHTLY) AS NEEDED
     Route: 048
     Dates: start: 20020420, end: 20050420
  14. BENZONATATE. [Concomitant]
     Active Substance: BENZONATATE
     Indication: NASOPHARYNGITIS
     Route: 065
     Dates: start: 200503

REACTIONS (7)
  - Acute kidney injury [Recovering/Resolving]
  - Hypocoagulable state [Unknown]
  - Hepatorenal syndrome [Unknown]
  - Tubulointerstitial nephritis [Unknown]
  - Acute hepatic failure [Recovering/Resolving]
  - Toxicity to various agents [Unknown]
  - Hypokalaemia [Unknown]

NARRATIVE: CASE EVENT DATE: 200504
